FAERS Safety Report 17074801 (Version 1)
Quarter: 2019Q4

REPORT INFORMATION
  Report Type: Spontaneous
  Country: US (occurrence: US)
  Receive Date: 20191125
  Receipt Date: 20191125
  Transmission Date: 20200122
  Serious: Yes (Other)
  Sender: FDA-Public Use
  Company Number: None

PATIENT
  Age: 56 Year
  Sex: Female
  Weight: 81 kg

DRUGS (1)
  1. IBUPROFEN 600MG TABLETS [Suspect]
     Active Substance: IBUPROFEN
     Indication: PAIN
     Dosage: ?          QUANTITY:1 TABLET(S);?
     Route: 048
     Dates: start: 20190901, end: 20190901

REACTIONS (7)
  - Headache [None]
  - Fatigue [None]
  - Dizziness [None]
  - Nausea [None]
  - Feeling hot [None]
  - Palpitations [None]
  - Photosensitivity reaction [None]

NARRATIVE: CASE EVENT DATE: 20190901
